FAERS Safety Report 5218719-1 (Version None)
Quarter: 2007Q1

REPORT INFORMATION
  Report Type: 
  Country: None (occurrence: None)
  Receive Date: 20070122
  Receipt Date: 20070110
  Transmission Date: 20070707
  Serious: Yes (Hospitalization, Other)
  Sender: FDA-Public Use
  Company Number: GXKR2007US00695

PATIENT
  Sex: Male
  Weight: 3.3 kg

DRUGS (1)
  1. AZITHROMYCIN [Suspect]
     Dosage: SEE IMAGE, TRANSPLACENTAL
     Route: 064

REACTIONS (6)
  - CAESAREAN SECTION [None]
  - DRUG EXPOSURE DURING PREGNANCY [None]
  - GROUP B STREPTOCOCCUS NEONATAL SEPSIS [None]
  - GRUNTING [None]
  - NEONATAL DISORDER [None]
  - TACHYPNOEA [None]
